FAERS Safety Report 4571120-6 (Version None)
Quarter: 2005Q1

REPORT INFORMATION
  Report Type: 
  Country: None (occurrence: None)
  Receive Date: 20050202
  Receipt Date: 20050121
  Transmission Date: 20050727
  Serious: Yes (Other)
  Sender: FDA-Public Use
  Company Number: 2004118966

PATIENT
  Age: 5 Year
  Sex: Male
  Weight: 22 kg

DRUGS (2)
  1. ZITHROMAX [Suspect]
     Indication: OTITIS MEDIA
     Dosage: 200 MG (UNK, 1 D), ORAL
     Route: 048
     Dates: start: 20041220
  2. ZITHROMAX [Suspect]
     Indication: PYREXIA
     Dosage: 200 MG (UNK, 1 D), ORAL
     Route: 048
     Dates: start: 20041220

REACTIONS (2)
  - NEPHRITIS INTERSTITIAL [None]
  - PYREXIA [None]
